FAERS Safety Report 4288456-9 (Version None)
Quarter: 2004Q1

REPORT INFORMATION
  Report Type: 
  Country: None (occurrence: None)
  Receive Date: 20040204
  Receipt Date: 20040127
  Transmission Date: 20041129
  Serious: Yes (Hospitalization)
  Sender: FDA-Public Use
  Company Number: 200410208DE

PATIENT
  Age: 59 Year
  Sex: Male
  Weight: 80 kg

DRUGS (7)
  1. AMARYL [Suspect]
     Indication: DIABETES MELLITUS
     Dosage: QAM PO
     Route: 048
     Dates: start: 20011017, end: 20011113
  2. MESCORIT [Concomitant]
  3. CAPTOHEXAL [Concomitant]
  4. LEVOTHYROXINE SODIUM [Concomitant]
  5. VIAGRA [Concomitant]
  6. NOVAMINSULFON [Concomitant]
  7. MEGACILLIN [Concomitant]

REACTIONS (2)
  - NASOPHARYNGITIS [None]
  - STEVENS-JOHNSON SYNDROME [None]
